FAERS Safety Report 25709602 (Version 4)
Quarter: 2025Q4

REPORT INFORMATION
  Report Type: Report from Study
  Country: US (occurrence: US)
  Receive Date: 20250821
  Receipt Date: 20251016
  Transmission Date: 20260117
  Serious: Yes (Other)
  Sender: MALLINCKRODT
  Company Number: US-MALLINCKRODT-MNK202505169

PATIENT
  Age: 65 Year
  Sex: Female

DRUGS (2)
  1. CORTICOTROPIN [Suspect]
     Active Substance: CORTICOTROPIN
     Indication: Rheumatoid arthritis
     Dosage: 80 UNITS
     Route: 058
     Dates: start: 20250812, end: 2025
  2. CORTICOTROPIN [Suspect]
     Active Substance: CORTICOTROPIN
     Dosage: UNKNOWN
     Dates: start: 2025

REACTIONS (11)
  - Rheumatoid arthritis [Not Recovered/Not Resolved]
  - Blood potassium decreased [Recovering/Resolving]
  - Urinary tract infection [Recovering/Resolving]
  - Brain fog [Not Recovered/Not Resolved]
  - Somnolence [Unknown]
  - Nervousness [Recovered/Resolved]
  - Carpal tunnel syndrome [Unknown]
  - Influenza [Unknown]
  - Injection site pain [Unknown]
  - Insomnia [Unknown]
  - Drug ineffective [Unknown]

NARRATIVE: CASE EVENT DATE: 20250101
